FAERS Safety Report 5408855-9 (Version None)
Quarter: 2007Q3

REPORT INFORMATION
  Report Type: 
  Country: None (occurrence: None)
  Receive Date: 20070808
  Receipt Date: 20070727
  Transmission Date: 20080115
  Serious: Yes (Other)
  Sender: FDA-Public Use
  Company Number: FR-PFIZER INC-2007062481

PATIENT
  Age: 58 Year
  Sex: Female

DRUGS (1)
  1. SALAZOPYRINE [Suspect]

REACTIONS (1)
  - EXTRASYSTOLES [None]
